FAERS Safety Report 5909729-7 (Version None)
Quarter: 2008Q4

REPORT INFORMATION
  Report Type: 
  Country: None (occurrence: None)
  Receive Date: 20081006
  Receipt Date: 20081006
  Transmission Date: 20090506
  Serious: Yes (Life-Threatening)
  Sender: FDA-Public Use
  Company Number: None

PATIENT
  Sex: Male
  Weight: 139.7079 kg

DRUGS (2)
  1. RANITIDINE [Suspect]
     Indication: GASTROOESOPHAGEAL REFLUX DISEASE
     Dosage: 150MG TWICE DAILY BY MOUTH
     Route: 048
     Dates: start: 20080715, end: 20080729
  2. DEPAKOTE ER [Suspect]
     Indication: PSYCHOTIC DISORDER
     Dosage: 1500MG AT BEDTIME BY MOUTH
     Route: 048
     Dates: start: 20080724, end: 20080815

REACTIONS (1)
  - NEUTROPENIA [None]
